FAERS Safety Report 25623401 (Version 1)
Quarter: 2025Q3

REPORT INFORMATION
  Report Type: Spontaneous
  Country: US (occurrence: US)
  Receive Date: 20250730
  Receipt Date: 20250730
  Transmission Date: 20251020
  Serious: Yes (Other)
  Sender: CALLIDITAS THERAPEUTICS AB
  Company Number: US-Calliditas-2025CAL01553

PATIENT
  Age: 40 Year
  Sex: Male

DRUGS (6)
  1. TARPEYO [Suspect]
     Active Substance: BUDESONIDE
     Indication: IgA nephropathy
     Dosage: TAKE 4 CAPSULES (16 MG) IN THE MORNING AT LEAST 1 HOUR BEFORE A MEAL ORALLY ONCE A DAY FOR 30 DAYS
     Route: 048
     Dates: start: 20241012
  2. NORVASC [Concomitant]
     Active Substance: AMLODIPINE BESYLATE
  3. FILSPARI [Concomitant]
     Active Substance: SPARSENTAN
  4. KERENDIA [Concomitant]
     Active Substance: FINERENONE
  5. CALCIUM [Concomitant]
     Active Substance: CALCIUM
  6. ELIQUIS [Concomitant]
     Active Substance: APIXABAN

REACTIONS (2)
  - Deep vein thrombosis [Recovering/Resolving]
  - Rash erythematous [Unknown]

NARRATIVE: CASE EVENT DATE: 20250524
